FAERS Safety Report 7148444-1 (Version None)
Quarter: 2010Q4

REPORT INFORMATION
  Report Type: 
  Country: None (occurrence: None)
  Receive Date: 20101209
  Receipt Date: 20101203
  Transmission Date: 20110411
  Serious: Yes (Death, Hospitalization, Other)
  Sender: FDA-Public Use
  Company Number: US-CELGENEUS-163-20785-10101276

PATIENT
  Sex: Male
  Weight: 69.371 kg

DRUGS (23)
  1. THALOMID [Suspect]
     Indication: MULTIPLE MYELOMA
     Route: 048
     Dates: start: 20100604, end: 20100905
  2. DOXORUBICIN HCL [Concomitant]
     Indication: MULTIPLE MYELOMA
     Route: 065
  3. ETOPOSIDE [Concomitant]
     Indication: MULTIPLE MYELOMA
     Route: 065
  4. CYCLOPHOSPHAMIDE [Concomitant]
     Indication: MULTIPLE MYELOMA
     Route: 065
  5. CISPLATIN [Concomitant]
     Indication: MULTIPLE MYELOMA
     Route: 065
  6. DEXAMETHASONE [Concomitant]
     Indication: MULTIPLE MYELOMA
     Route: 065
  7. NICOTINE [Concomitant]
     Route: 065
  8. OXCARBAZEPINE [Concomitant]
     Route: 048
  9. GABAPENTIN [Concomitant]
     Route: 048
  10. MORPHINE [Concomitant]
     Route: 048
  11. MORPHINE [Concomitant]
     Route: 048
  12. AMLODIPINE [Concomitant]
     Route: 048
  13. SPIRONOLACTONE [Concomitant]
     Route: 048
  14. POTASSIUM CHLORIDE [Concomitant]
     Route: 048
  15. FUROSEMIDE [Concomitant]
     Route: 048
  16. PROPRANOLOL [Concomitant]
     Route: 048
  17. POLYETHYLENE GLYCOL [Concomitant]
     Route: 048
  18. CHOLECALCIFEROL [Concomitant]
     Route: 048
  19. DOCUSATE SODIUM [Concomitant]
     Route: 048
  20. CALCIUM CARBONATE [Concomitant]
     Route: 048
  21. LORAZEPAM [Concomitant]
     Route: 051
  22. ENOXAPARIN SODIUM [Concomitant]
     Route: 058
  23. CRANIOSPINAL RADIATION [Concomitant]
     Dosage: 30.6
     Route: 065
     Dates: start: 20100817, end: 20100907

REACTIONS (4)
  - CONVULSION [None]
  - DISEASE PROGRESSION [None]
  - GASTRITIS [None]
  - MENTAL STATUS CHANGES [None]
